FAERS Safety Report 23544952 (Version 1)
Quarter: 2024Q1

REPORT INFORMATION
  Report Type: Spontaneous
  Country: US (occurrence: US)
  Receive Date: 20240220
  Receipt Date: 20240220
  Transmission Date: 20240410
  Serious: No
  Sender: FDA-Public Use
  Company Number: US-Millicent Holdings Ltd.-MILL20240065

PATIENT
  Age: 76 Year
  Sex: Female

DRUGS (3)
  1. INTRAROSA [Suspect]
     Active Substance: PRASTERONE
     Indication: Dyspareunia
     Dosage: 6.5 MG DAILY
     Route: 067
     Dates: start: 2024
  2. INTRAROSA [Suspect]
     Active Substance: PRASTERONE
     Indication: Vulvovaginal dryness
  3. INTRAROSA [Suspect]
     Active Substance: PRASTERONE
     Indication: Atrophic vulvovaginitis

REACTIONS (1)
  - Contraindicated product administered [Unknown]

NARRATIVE: CASE EVENT DATE: 20240101
